FAERS Safety Report 22317833 (Version 1)
Quarter: 2023Q2

REPORT INFORMATION
  Report Type: Spontaneous
  Country: US (occurrence: US)
  Receive Date: 20230515
  Receipt Date: 20230515
  Transmission Date: 20230721
  Serious: No
  Sender: FDA-Public Use
  Company Number: US-NOVEN PHARMACEUTICALS, INC.-2023-NOV-US000349

PATIENT
  Age: 8 Year
  Sex: Male

DRUGS (4)
  1. DAYTRANA [Suspect]
     Active Substance: METHYLPHENIDATE
     Indication: Attention deficit hyperactivity disorder
     Dosage: 30 MG/9 HOUR, 1 PATCH DAILY
     Route: 062
     Dates: start: 20230301
  2. DAYTRANA [Suspect]
     Active Substance: METHYLPHENIDATE
     Dosage: 20 MG/9 HOUR, 1 PATCH DAILY
     Route: 062
     Dates: start: 20221025, end: 20230301
  3. DAYTRANA [Suspect]
     Active Substance: METHYLPHENIDATE
     Dosage: 20 MG/9 HOUR, 1 PATCH DAILY
     Route: 062
     Dates: start: 20211218, end: 20221001
  4. DAYTRANA [Suspect]
     Active Substance: METHYLPHENIDATE
     Dosage: 15 MG/9 HOUR, UNKNOWN
     Route: 062
     Dates: start: 202111, end: 20211218

REACTIONS (2)
  - Therapeutic product ineffective [Recovered/Resolved]
  - Recalled product administered [Not Recovered/Not Resolved]

NARRATIVE: CASE EVENT DATE: 20230201
